FAERS Safety Report 17880313 (Version 2)
Quarter: 2020Q3

REPORT INFORMATION
  Report Type: Spontaneous
  Country: US (occurrence: US)
  Receive Date: 20200610
  Receipt Date: 20200924
  Transmission Date: 20201103
  Serious: No
  Sender: FDA-Public Use
  Company Number: US-PFIZER INC-2020190299

PATIENT
  Age: 84 Year
  Sex: Female
  Weight: 97.52 kg

DRUGS (1)
  1. SOMAVERT [Suspect]
     Active Substance: PEGVISOMANT
     Indication: ACROMEGALY
     Dosage: 10 MG, 1X/DAY (10MG 6 DAYS A WEEK)
     Dates: start: 20180419

REACTIONS (2)
  - Hypoacusis [Unknown]
  - Body height decreased [Unknown]
